FAERS Safety Report 16240895 (Version 7)
Quarter: 2020Q1

REPORT INFORMATION
  Report Type: Report from Study
  Country: DE (occurrence: DE)
  Receive Date: 20190425
  Receipt Date: 20200325
  Transmission Date: 20200409
  Serious: Yes (Hospitalization, Other)
  Sender: FDA-Public Use
  Company Number: PHHY2018DE192721

PATIENT
  Age: 58 Year
  Sex: Female
  Weight: 60 kg

DRUGS (15)
  1. PREDNISOLONE. [Concomitant]
     Active Substance: PREDNISOLONE
     Dosage: 15 MG, UNK
     Route: 048
     Dates: start: 20181107, end: 20181109
  2. PREDNISOLONE. [Concomitant]
     Active Substance: PREDNISOLONE
     Dosage: 10 MG, UNK
     Route: 048
     Dates: start: 20181110, end: 20181112
  3. ERELZI [Suspect]
     Active Substance: ETANERCEPT-SZZS
     Dosage: 50 MG, QW
     Route: 058
     Dates: start: 20181008, end: 20181203
  4. PREDNISOLONE. [Concomitant]
     Active Substance: PREDNISOLONE
     Dosage: 5 MG, UNK
     Route: 048
     Dates: start: 20181113, end: 20181115
  5. ERELZI [Suspect]
     Active Substance: ETANERCEPT-SZZS
     Indication: PSORIATIC ARTHROPATHY
     Dosage: 50 MG, QW
     Route: 058
     Dates: start: 20180716, end: 20180924
  6. PREDNISOLONE. [Concomitant]
     Active Substance: PREDNISOLONE
     Indication: PSORIATIC ARTHROPATHY
     Dosage: 50 MG, UNK
     Route: 048
     Dates: start: 20181102, end: 20181103
  7. ETORICOXIB. [Concomitant]
     Active Substance: ETORICOXIB
     Indication: PSORIATIC ARTHROPATHY
     Dosage: UNK
     Route: 048
     Dates: start: 20181002, end: 201902
  8. ERELZI [Suspect]
     Active Substance: ETANERCEPT-SZZS
     Dosage: 50 MG, QW
     Route: 058
     Dates: start: 20190101, end: 20190122
  9. ERELZI [Suspect]
     Active Substance: ETANERCEPT-SZZS
     Dosage: 50 MG, QW
     Route: 058
     Dates: start: 20190225, end: 20190704
  10. ETORICOXIB. [Concomitant]
     Active Substance: ETORICOXIB
     Dosage: UNK
     Route: 048
     Dates: start: 201902
  11. NOVAMINSULFON [Concomitant]
     Active Substance: METAMIZOLE
     Indication: PSORIATIC ARTHROPATHY
     Dosage: UNK
     Route: 048
     Dates: start: 20181029
  12. TRIAMCINOLON [Concomitant]
     Indication: PSORIATIC ARTHROPATHY
     Dosage: UNK
     Route: 014
     Dates: start: 20180831, end: 20180831
  13. ERELZI [Suspect]
     Active Substance: ETANERCEPT-SZZS
     Dosage: 50 MG, QW
     Route: 058
     Dates: start: 20190722
  14. PREDNISOLONE. [Concomitant]
     Active Substance: PREDNISOLONE
     Dosage: 20 MG, UNK
     Route: 048
     Dates: start: 20181104, end: 20181106
  15. PREDNISOLONE. [Concomitant]
     Active Substance: PREDNISOLONE
     Dosage: 5 MG, UNK
     Route: 048
     Dates: start: 20181121

REACTIONS (11)
  - Respiratory tract infection [Recovered/Resolved]
  - Red blood cell sedimentation rate increased [Unknown]
  - Hypertension [Not Recovered/Not Resolved]
  - Rotator cuff syndrome [Recovered/Resolved]
  - Nasopharyngitis [Recovered/Resolved]
  - Asthma [Recovered/Resolved]
  - C-reactive protein increased [Unknown]
  - Cough [Recovered/Resolved]
  - Rheumatoid factor increased [Unknown]
  - Bronchitis [Recovered/Resolved]
  - Prostatic specific antigen increased [Recovered/Resolved]

NARRATIVE: CASE EVENT DATE: 201809
